FAERS Safety Report 10085337 (Version 1)
Quarter: 2014Q2

REPORT INFORMATION
  Report Type: Spontaneous
  Country: US (occurrence: US)
  Receive Date: 20140417
  Receipt Date: 20140417
  Transmission Date: 20141212
  Serious: No
  Sender: FDA-Public Use
  Company Number: US-009507513-1404USA007138

PATIENT
  Age: 35 Year
  Sex: 0
  Weight: 58.96 kg

DRUGS (1)
  1. NUVARING [Suspect]
     Route: 067

REACTIONS (2)
  - Incorrect drug administration duration [Unknown]
  - Inappropriate schedule of drug administration [Unknown]
